FAERS Safety Report 4489770-4 (Version None)
Quarter: 2004Q4

REPORT INFORMATION
  Report Type: 
  Country: None (occurrence: None)
  Receive Date: 20041101
  Receipt Date: 20041025
  Transmission Date: 20050328
  Serious: Yes (Other)
  Sender: FDA-Public Use
  Company Number: PHNR2004AU01554

PATIENT
  Age: 26 Year
  Sex: Male
  Weight: 70 kg

DRUGS (1)
  1. VOLTAREN [Suspect]
     Dosage: 150 MG DAILY
     Route: 048
     Dates: start: 20040225, end: 20040227

REACTIONS (5)
  - DEPRESSED MOOD [None]
  - DISORIENTATION [None]
  - LETHARGY [None]
  - ROAD TRAFFIC ACCIDENT [None]
  - VISION BLURRED [None]
